FAERS Safety Report 5318690-8 (Version None)
Quarter: 2007Q2

REPORT INFORMATION
  Report Type: 
  Country: None (occurrence: None)
  Receive Date: 20070503
  Receipt Date: 20070503
  Transmission Date: 20071010
  Serious: No
  Sender: FDA-Public Use
  Company Number: None

PATIENT

DRUGS (1)
  1. ESTRIOL VAGINAL CREAM [Suspect]
     Indication: HYPERSENSITIVITY
     Dosage: 0.1% 3X/WK VAG.
     Route: 067

REACTIONS (6)
  - BURNING SENSATION [None]
  - CONTRAINDICATION TO MEDICAL TREATMENT [None]
  - DRUG DISPENSING ERROR [None]
  - FUNGAL INFECTION [None]
  - PRURITUS [None]
  - VULVOVAGINAL DRYNESS [None]
